FAERS Safety Report 18859966 (Version 1)
Quarter: 2021Q1

REPORT INFORMATION
  Report Type: Spontaneous
  Country: US (occurrence: US)
  Receive Date: 20210208
  Receipt Date: 20210208
  Transmission Date: 20210420
  Serious: No
  Sender: FDA-Public Use
  Company Number: US-009507513-2102USA000154

PATIENT
  Sex: Female
  Weight: 67.13 kg

DRUGS (2)
  1. INLYTA [Suspect]
     Active Substance: AXITINIB
     Indication: RENAL CANCER
     Dosage: 5MG TABLETS EVERY 12 HOURS BY MOUTH
     Route: 048
     Dates: start: 2020
  2. KEYTRUDA [Suspect]
     Active Substance: PEMBROLIZUMAB
     Dosage: UNK
     Route: 042

REACTIONS (11)
  - Glossodynia [Unknown]
  - Vomiting [Unknown]
  - Rash [Recovered/Resolved]
  - Stomatitis [Unknown]
  - Nausea [Unknown]
  - Pain in extremity [Unknown]
  - Constipation [Unknown]
  - Limb injury [Unknown]
  - Skin exfoliation [Unknown]
  - Decreased appetite [Unknown]
  - Diarrhoea [Unknown]

NARRATIVE: CASE EVENT DATE: 2020
